FAERS Safety Report 9959591 (Version 2)
Quarter: 2014Q1

REPORT INFORMATION
  Report Type: Spontaneous
  Country: FR (occurrence: None)
  Receive Date: 20140227
  Receipt Date: 20140311
  Transmission Date: 20141002
  Serious: Yes (Other)
  Sender: FDA-Public Use
  Company Number: 2198131

PATIENT
  Age: 82 Year
  Sex: Male

DRUGS (15)
  1. CARBOPLATIN [Suspect]
     Indication: NASAL SINUS CANCER
     Route: 042
     Dates: start: 20140127, end: 20140127
  2. FLUOROURACILE [Suspect]
     Indication: NASAL SINUS CANCER
     Dosage: 1.5 G GRAMS, UNKNOWN, INTRAVENOUS (NOT OTHERWISE SPECIFIED)
     Route: 042
     Dates: start: 20140127, end: 20140127
  3. CETUXIMAB [Suspect]
     Indication: NASAL SINUS CANCER
     Route: 042
     Dates: start: 20140127, end: 20140207
  4. POLARAMINE [Concomitant]
  5. SOLUMEDROL [Concomitant]
  6. AZANTAC [Concomitant]
  7. ZOPHREN [Concomitant]
  8. PRIMPERAN [Concomitant]
  9. FUROSEMIDE [Concomitant]
  10. CLOPIDOGREL [Concomitant]
  11. DILTIAZEM LP [Concomitant]
  12. ROSUVASTATINE [Concomitant]
  13. IMMUNOGLOBULIN HUMAN NORMAL [Concomitant]
  14. ESOMEPRAZOLE [Concomitant]
  15. TAMSULOSINE [Concomitant]

REACTIONS (6)
  - Dementia [None]
  - Confusional state [None]
  - Disease progression [None]
  - Cerebrovascular disorder [None]
  - Contraindication to medical treatment [None]
  - Disorientation [None]
